FAERS Safety Report 18152499 (Version 1)
Quarter: 2020Q3

REPORT INFORMATION
  Report Type: Spontaneous
  Country: US (occurrence: US)
  Receive Date: 20200814
  Receipt Date: 20200814
  Transmission Date: 20201103
  Serious: Yes (Death)
  Sender: FDA-Public Use
  Company Number: US-ASTRAZENECA-2020SF01381

PATIENT
  Age: 4013 Week
  Sex: Female

DRUGS (2)
  1. BEVESPI AEROSPHERE [Suspect]
     Active Substance: FORMOTEROL FUMARATE\GLYCOPYRROLATE
     Indication: LUNG DISORDER
     Dosage: TWO TIMES A DAY
     Route: 055
  2. QVAR [Concomitant]
     Active Substance: BECLOMETHASONE DIPROPIONATE
     Indication: LUNG DISORDER
     Dosage: 2 PUFFS TWICE DAILY
     Route: 055

REACTIONS (2)
  - Aneurysm ruptured [Fatal]
  - Intracranial aneurysm [Fatal]
